FAERS Safety Report 11885588 (Version 1)
Quarter: 2016Q1

REPORT INFORMATION
  Report Type: Report from Study
  Country: US (occurrence: US)
  Receive Date: 20160104
  Receipt Date: 20160104
  Transmission Date: 20160526
  Serious: Yes (Hospitalization)
  Sender: FDA-Public Use
  Company Number: US-BIOGEN-2015BI00166261

PATIENT
  Age: 58 Year
  Sex: Female

DRUGS (1)
  1. TECFIDERA [Suspect]
     Active Substance: DIMETHYL FUMARATE
     Indication: MULTIPLE SCLEROSIS
     Route: 048
     Dates: start: 20150806

REACTIONS (8)
  - Muscular weakness [Unknown]
  - Nasal congestion [Unknown]
  - Headache [Unknown]
  - Head injury [Unknown]
  - Oropharyngeal pain [Unknown]
  - Fall [Unknown]
  - Abasia [Unknown]
  - Malaise [Unknown]

NARRATIVE: CASE EVENT DATE: 20151224
